FAERS Safety Report 6401215-3 (Version None)
Quarter: 2009Q4

REPORT INFORMATION
  Report Type: 
  Country: None (occurrence: None)
  Receive Date: 20091009
  Receipt Date: 20090930
  Transmission Date: 20100525
  Serious: Yes (Hospitalization, Other)
  Sender: FDA-Public Use
  Company Number: 230138J09BRA

PATIENT
  Age: 43 Year
  Sex: Female

DRUGS (5)
  1. REBIF [Suspect]
     Dosage: 44 MCG, 3 IN 1 WEEKS
     Dates: start: 20060310, end: 20080801
  2. AMANTADINE HCL [Concomitant]
  3. MANTIDAM (AMANTADINE HYDROCHLORIDE) [Concomitant]
  4. TYLENOL [Concomitant]
  5. PAMELOR [Concomitant]

REACTIONS (2)
  - MULTIPLE SCLEROSIS RELAPSE [None]
  - URINARY TRACT INFECTION [None]
